FAERS Safety Report 6750062 (Version 3)
Quarter: 2013Q3

REPORT INFORMATION
  Report Type: Spontaneous
  Country: DE (occurrence: None)
  Receive Date: 20080825
  Receipt Date: 20130716
  Transmission Date: 20140515
  Serious: Yes (Hospitalization)
  Sender: FDA-Public Use
  Company Number: JPI-P-004414

PATIENT
  Age: 18 Year
  Sex: Male

DRUGS (3)
  1. XYREM [Suspect]
     Indication: HYPERSOMNIA
     Dosage: 3 GM (1.5 GM, 2 IN 1 D), ORAL
     Route: 048
     Dates: start: 20071126, end: 20090620
  2. MODAFINIL (MODAFINIL) [Concomitant]
  3. INSULIN [Concomitant]

REACTIONS (6)
  - Hypoglycaemia [None]
  - Grand mal convulsion [None]
  - Myoclonus [None]
  - Grand mal convulsion [None]
  - Insomnia [None]
  - Hypoglycaemic seizure [None]
